FAERS Safety Report 21925507 (Version 4)
Quarter: 2023Q2

REPORT INFORMATION
  Report Type: Spontaneous
  Country: JP (occurrence: JP)
  Receive Date: 20230130
  Receipt Date: 20230525
  Transmission Date: 20230721
  Serious: Yes (Other)
  Sender: FDA-Public Use
  Company Number: JP-BRISTOL-MYERS SQUIBB COMPANY-2023-012438

PATIENT
  Age: 75 Year
  Sex: Female

DRUGS (2)
  1. ORENCIA [Suspect]
     Active Substance: ABATACEPT
     Indication: Rheumatoid arthritis
     Dosage: INITIALLY, THE INFUSION WAS EVERY 4 WEEKS, AND THE ADMINISTRATION INTERVAL WAS EXTENDED WITH THE EFF
     Route: 041
     Dates: start: 20150928
  2. ORENCIA [Suspect]
     Active Substance: ABATACEPT
     Route: 058
     Dates: start: 20220425, end: 202205

REACTIONS (2)
  - Skin induration [Recovered/Resolved]
  - Cutaneous sarcoidosis [Recovered/Resolved]

NARRATIVE: CASE EVENT DATE: 20211201
